FAERS Safety Report 8256401-7 (Version None)
Quarter: 2012Q2

REPORT INFORMATION
  Report Type: 
  Country: None (occurrence: None)
  Receive Date: 20120402
  Receipt Date: 20120402
  Transmission Date: 20120825
  Serious: Yes (Other)
  Sender: FDA-Public Use
  Company Number: None

PATIENT
  Age: 53 Year
  Sex: Male
  Weight: 97.1 kg

DRUGS (2)
  1. BOCEPREVIR [Suspect]
     Indication: HEPATITIS C
     Dosage: MG PO
     Route: 048
     Dates: start: 20111225
  2. INTERFERON [Suspect]
     Indication: HEPATITIS C
     Dosage: ML SQ
     Route: 058
     Dates: start: 20110914, end: 20111220

REACTIONS (3)
  - ANAEMIA [None]
  - NEUTROPENIA [None]
  - LEUKOPENIA [None]
